FAERS Safety Report 22394488 (Version 1)
Quarter: 2023Q2

REPORT INFORMATION
  Report Type: Spontaneous
  Country: CN (occurrence: None)
  Receive Date: 20230601
  Receipt Date: 20230601
  Transmission Date: 20230721
  Serious: Yes (Other)
  Sender: FDA-Public Use
  Company Number: CN-Eisai Medical Research-EC-2023-141013

PATIENT
  Age: 56 Year
  Sex: Female
  Weight: 50 kg

DRUGS (3)
  1. DONEPEZIL [Suspect]
     Active Substance: DONEPEZIL
     Indication: Dementia
     Route: 048
     Dates: start: 20191201
  2. PAROXETINE [Suspect]
     Active Substance: PAROXETINE
     Indication: Anxiety
     Route: 048
     Dates: start: 20191201
  3. MEMANTINE [Concomitant]
     Active Substance: MEMANTINE
     Indication: Dementia
     Dosage: DOSE AND FREQUENCY UNKNOWN
     Route: 048
     Dates: end: 202212

REACTIONS (1)
  - Status epilepticus [Unknown]
